FAERS Safety Report 8120068-9 (Version None)
Quarter: 2012Q1

REPORT INFORMATION
  Report Type: 
  Country: None (occurrence: None)
  Receive Date: 20120207
  Receipt Date: 20120203
  Transmission Date: 20120608
  Serious: Yes (Other)
  Sender: FDA-Public Use
  Company Number: US-PFIZER INC-2012030767

PATIENT
  Sex: Male
  Weight: 78.912 kg

DRUGS (3)
  1. NEURONTIN [Suspect]
     Dosage: 400 MG, DAILY
  2. ZOLOFT [Suspect]
     Dosage: 100 MG, DAILY
  3. LIPITOR [Suspect]
     Dosage: 80 MG, DAILY

REACTIONS (4)
  - DIABETES MELLITUS [None]
  - INSOMNIA [None]
  - CARDIAC DISORDER [None]
  - RENAL DISORDER [None]
